FAERS Safety Report 11894366 (Version 1)
Quarter: 2016Q1

REPORT INFORMATION
  Report Type: Spontaneous
  Country: US (occurrence: None)
  Receive Date: 20160106
  Receipt Date: 20160106
  Transmission Date: 20160526
  Serious: No
  Sender: FDA-Public Use
  Company Number: None

PATIENT
  Age: 45 Year
  Sex: Female
  Weight: 86.1 kg

DRUGS (3)
  1. TAXOL [Suspect]
     Active Substance: PACLITAXEL
     Dates: end: 20151113
  2. CARBOPLATIN. [Suspect]
     Active Substance: CARBOPLATIN
     Dates: end: 20151113
  3. CISPLATIN. [Suspect]
     Active Substance: CISPLATIN
     Dates: end: 20150706

REACTIONS (6)
  - Dysuria [None]
  - Urinary tract infection [None]
  - Pelvic pain [None]
  - Pollakiuria [None]
  - Micturition urgency [None]
  - Platelet count decreased [None]

NARRATIVE: CASE EVENT DATE: 20151211
